FAERS Safety Report 7366559-X (Version None)
Quarter: 2011Q1

REPORT INFORMATION
  Report Type: 
  Country: None (occurrence: None)
  Receive Date: 20110309
  Receipt Date: 20110223
  Transmission Date: 20110831
  Serious: Yes (Other)
  Sender: FDA-Public Use
  Company Number: 2011MA001897

PATIENT
  Age: 41 Year
  Sex: Female
  Weight: 58 kg

DRUGS (2)
  1. INFLIXIMAB (INFLIXIMAB) [Suspect]
     Indication: CROHN'S DISEASE
     Dosage: 285 MG; IV
     Route: 042
     Dates: start: 20101211
  2. HYDROCORTISONE 2.5% CREAM [Suspect]
     Indication: PREMEDICATION
     Dosage: 200 MG; IIV
     Route: 042
     Dates: start: 20101211

REACTIONS (3)
  - TACHYCARDIA [None]
  - LOSS OF CONSCIOUSNESS [None]
  - HYPERHIDROSIS [None]
